FAERS Safety Report 7554913-2 (Version None)
Quarter: 2011Q2

REPORT INFORMATION
  Report Type: 
  Country: None (occurrence: None)
  Receive Date: 20110617
  Receipt Date: 20110606
  Transmission Date: 20111010
  Serious: Yes (Hospitalization)
  Sender: FDA-Public Use
  Company Number: US-ELI_LILLY_AND_COMPANY-US201106001403

PATIENT
  Age: 69 Year
  Sex: Female

DRUGS (4)
  1. LANTUS [Concomitant]
     Dosage: 50 U, EACH EVENING
  2. HUMALOG [Suspect]
     Dosage: 15 U, TID
     Dates: start: 20100101
  3. HUMALOG [Suspect]
     Indication: DIABETES MELLITUS
     Dosage: 15 U, TID
     Dates: start: 20100101
  4. ADVAIR DISKUS 100/50 [Concomitant]
     Indication: ASTHMA
     Dosage: UNK

REACTIONS (15)
  - GASTROINTESTINAL PAIN [None]
  - HYPOPHAGIA [None]
  - ASTHMA [None]
  - DYSPEPSIA [None]
  - HYPERTENSION [None]
  - VOMITING [None]
  - DIARRHOEA [None]
  - GASTROINTESTINAL HYPOMOTILITY [None]
  - GASTRIC DISORDER [None]
  - CHEST PAIN [None]
  - INSOMNIA [None]
  - ANXIETY [None]
  - GASTROINTESTINAL INFLAMMATION [None]
  - BLOOD GLUCOSE INCREASED [None]
  - LUNG DISORDER [None]
